FAERS Safety Report 9705367 (Version 1)
Quarter: 2013Q4

REPORT INFORMATION
  Report Type: Report from Study
  Country: BR (occurrence: BR)
  Receive Date: 20131122
  Receipt Date: 20131122
  Transmission Date: 20140711
  Serious: Yes (Death, Hospitalization, Other)
  Sender: FDA-Public Use
  Company Number: PHHY2013BR133754

PATIENT
  Age: 54 Year
  Sex: Female
  Weight: 52 kg

DRUGS (4)
  1. TRILEPTAL [Suspect]
     Indication: CONVULSION
     Dosage: 200 MG, BID
     Route: 048
  2. TRILEPTAL [Suspect]
     Dosage: 300 MG, BID
     Route: 048
  3. TRILEPTAL [Suspect]
     Dosage: 600 MG, QD
     Route: 048
  4. GARDENAL//PHENOBARBITAL [Concomitant]
     Indication: CONVULSION
     Dosage: 100 MG, UNK
     Dates: start: 201303, end: 201311

REACTIONS (2)
  - Rectal cancer [Fatal]
  - Convulsion [Unknown]
